FAERS Safety Report 11569929 (Version 3)
Quarter: 2015Q4

REPORT INFORMATION
  Report Type: Report from Study
  Country: BR (occurrence: BR)
  Receive Date: 20150929
  Receipt Date: 20151009
  Transmission Date: 20160304
  Serious: Yes (Hospitalization, Other)
  Sender: FDA-Public Use
  Company Number: BR-ABBVIE-15K-020-1469094-00

PATIENT
  Age: 54 Year
  Sex: Female
  Weight: 70 kg

DRUGS (1)
  1. HUMIRA [Suspect]
     Active Substance: ADALIMUMAB
     Indication: RHEUMATOID ARTHRITIS
     Route: 058
     Dates: start: 20150603, end: 20150710

REACTIONS (21)
  - Weight decreased [Recovered/Resolved]
  - Dysuria [Recovered/Resolved]
  - Renal pain [Recovered/Resolved]
  - Rheumatoid arthritis [Recovered/Resolved]
  - Dyspnoea [Recovered/Resolved]
  - Arthritis [Recovering/Resolving]
  - Unevaluable event [Recovering/Resolving]
  - Abasia [Recovered/Resolved]
  - Renal impairment [Recovered/Resolved]
  - Epistaxis [Unknown]
  - General physical health deterioration [Recovered/Resolved]
  - Hypoxia [Recovered/Resolved]
  - Epistaxis [Recovered/Resolved]
  - Anaemia [Recovered/Resolved]
  - Drug ineffective [Recovering/Resolving]
  - Nosocomial infection [Recovered/Resolved]
  - Lung disorder [Recovered/Resolved]
  - Asthenia [Recovered/Resolved]
  - Pain [Recovering/Resolving]
  - Decreased appetite [Recovered/Resolved]
  - Hypophagia [Recovered/Resolved]

NARRATIVE: CASE EVENT DATE: 2015
